FAERS Safety Report 17442819 (Version 2)
Quarter: 2020Q2

REPORT INFORMATION
  Report Type: Report from Study
  Country: None (occurrence: KW)
  Receive Date: 20200221
  Receipt Date: 20200406
  Transmission Date: 20200713
  Serious: Yes (Death, Hospitalization)
  Sender: FDA-Public Use
  Company Number: KW-ABBVIE-20K-091-3285432-00

PATIENT
  Age: 61 Year
  Sex: Male

DRUGS (2)
  1. IMBRUVICA [Suspect]
     Active Substance: IBRUTINIB
     Indication: CHRONIC LYMPHOCYTIC LEUKAEMIA
     Route: 048
     Dates: start: 20200109, end: 20200120
  2. DASATINIB. [Suspect]
     Active Substance: DASATINIB
     Indication: CHRONIC LYMPHOCYTIC LEUKAEMIA
     Route: 065

REACTIONS (6)
  - Congestive cardiomyopathy [Unknown]
  - White blood cell disorder [Unknown]
  - Resuscitation [Fatal]
  - Dizziness [Unknown]
  - Pyrexia [Unknown]
  - Hypotension [Unknown]

NARRATIVE: CASE EVENT DATE: 20200120
